FAERS Safety Report 7493837-6 (Version None)
Quarter: 2011Q2

REPORT INFORMATION
  Report Type: 
  Country: None (occurrence: None)
  Receive Date: 20110519
  Receipt Date: 20110519
  Transmission Date: 20111010
  Serious: Yes (Death)
  Sender: FDA-Public Use
  Company Number: None

PATIENT
  Sex: Female
  Weight: 16.7 kg

DRUGS (10)
  1. DILTIAZEM [Concomitant]
  2. MAGNESIUM AMINO ACID [Concomitant]
  3. CYCLOSPORINE [Concomitant]
  4. DIPHENHYDRAMINE HCL [Concomitant]
  5. GAMMAGARD LIQUID [Suspect]
     Indication: HEART TRANSPLANT REJECTION
     Dosage: 10MG ONCE IV
     Route: 042
     Dates: start: 20110428
  6. RANITIDINE [Concomitant]
  7. GAMMAGARD LIQUID [Suspect]
     Indication: HEART TRANSPLANT REJECTION
     Dosage: 20GM ONCE IV
     Route: 042
     Dates: start: 20110428
  8. DIGOXIN [Concomitant]
  9. FERROUS SULFATE TAB [Concomitant]
  10. ACETAMINOPHEN [Concomitant]

REACTIONS (1)
  - CARDIAC ARREST [None]
